FAERS Safety Report 16333105 (Version 4)
Quarter: 2022Q1

REPORT INFORMATION
  Report Type: Spontaneous
  Country: US (occurrence: US)
  Receive Date: 20190520
  Receipt Date: 20220113
  Transmission Date: 20220424
  Serious: Yes (Other)
  Sender: FDA-Public Use
  Company Number: US-GILEAD-2019-0407951

PATIENT
  Age: 49 Year
  Sex: Female
  Weight: 99.773 kg

DRUGS (28)
  1. ATRIPLA [Suspect]
     Active Substance: EFAVIRENZ\EMTRICITABINE\TENOFOVIR DISOPROXIL FUMARATE
     Indication: HIV infection
     Dosage: UNK
     Route: 048
     Dates: start: 200302, end: 20161212
  2. DESCOVY [Concomitant]
     Active Substance: EMTRICITABINE\TENOFOVIR ALAFENAMIDE FUMARATE
  3. TIVICAY [Concomitant]
     Active Substance: DOLUTEGRAVIR SODIUM
  4. AMLODIPINE [Concomitant]
     Active Substance: AMLODIPINE BESYLATE
  5. BENAZEPRIL [Concomitant]
     Active Substance: BENAZEPRIL HYDROCHLORIDE
  6. RANITIDINE [Concomitant]
     Active Substance: RANITIDINE
  7. CLONIDINE [Concomitant]
     Active Substance: CLONIDINE
  8. ATORVASTATIN [Concomitant]
     Active Substance: ATORVASTATIN
  9. LYRICA [Concomitant]
     Active Substance: PREGABALIN
  10. LISINOPRIL [Concomitant]
     Active Substance: LISINOPRIL
  11. GABAPENTIN [Concomitant]
     Active Substance: GABAPENTIN
  12. TEMAZEPAM [Concomitant]
     Active Substance: TEMAZEPAM
  13. TIZANIDINE [Concomitant]
     Active Substance: TIZANIDINE
  14. FENOFIBRATE [Concomitant]
     Active Substance: FENOFIBRATE
  15. CARVEDILOL [Concomitant]
     Active Substance: CARVEDILOL
  16. ASPIRIN [Concomitant]
     Active Substance: ASPIRIN
  17. OXYCODONE [Concomitant]
     Active Substance: OXYCODONE
  18. BACLOFEN [Concomitant]
     Active Substance: BACLOFEN
  19. CHOLECALCIFEROL [Concomitant]
     Active Substance: CHOLECALCIFEROL
  20. CYCLOBENZAPRINE [Concomitant]
     Active Substance: CYCLOBENZAPRINE
  21. DICLOFENAC [Concomitant]
     Active Substance: DICLOFENAC
  22. LOSARTAN [Concomitant]
     Active Substance: LOSARTAN
  23. LORATADINE [Concomitant]
     Active Substance: LORATADINE
  24. POTASSIUM CITRATE [Concomitant]
     Active Substance: POTASSIUM CITRATE
  25. SUMATRIPTAN [Concomitant]
     Active Substance: SUMATRIPTAN
  26. ACETAMINOPHEN [Concomitant]
     Active Substance: ACETAMINOPHEN
  27. DESLORATADINE [Concomitant]
     Active Substance: DESLORATADINE
  28. OMEPRAZOLE [Concomitant]
     Active Substance: OMEPRAZOLE

REACTIONS (19)
  - Tibia fracture [Recovered/Resolved]
  - Osteoporosis [Unknown]
  - Shoulder operation [Unknown]
  - Knee operation [Unknown]
  - Emotional distress [Not Recovered/Not Resolved]
  - Economic problem [Not Recovered/Not Resolved]
  - Anhedonia [Not Recovered/Not Resolved]
  - Anxiety [Not Recovered/Not Resolved]
  - Pain [Not Recovered/Not Resolved]
  - Glomerular filtration rate abnormal [Not Recovered/Not Resolved]
  - Blood creatinine abnormal [Not Recovered/Not Resolved]
  - Bone density decreased [Not Recovered/Not Resolved]
  - Vitamin D deficiency [Unknown]
  - Pain in extremity [Not Recovered/Not Resolved]
  - Lower limb fracture [Recovered/Resolved]
  - Arthralgia [Not Recovered/Not Resolved]
  - Dysstasia [Not Recovered/Not Resolved]
  - Gait disturbance [Not Recovered/Not Resolved]
  - Osteoarthritis [Unknown]

NARRATIVE: CASE EVENT DATE: 20090101
